FAERS Safety Report 24634110 (Version 1)
Quarter: 2024Q4

REPORT INFORMATION
  Report Type: Spontaneous
  Country: FR (occurrence: FR)
  Receive Date: 20241119
  Receipt Date: 20241119
  Transmission Date: 20250114
  Serious: Yes (Other)
  Sender: NOVO NORDISK
  Company Number: FR-NOVOPROD-1315080

PATIENT
  Age: 62 Year
  Sex: Female

DRUGS (1)
  1. OZEMPIC [Suspect]
     Active Substance: SEMAGLUTIDE
     Indication: Product used for unknown indication
     Dosage: 0.25 MG, QW
     Dates: start: 20241012, end: 20241107

REACTIONS (6)
  - Suicidal ideation [Unknown]
  - Face oedema [Unknown]
  - Cervix oedema [Unknown]
  - Headache [Unknown]
  - Dyspepsia [Unknown]
  - Nausea [Unknown]
